FAERS Safety Report 12821106 (Version 3)
Quarter: 2017Q4

REPORT INFORMATION
  Report Type: Spontaneous
  Country: US (occurrence: US)
  Receive Date: 20161006
  Receipt Date: 20171220
  Transmission Date: 20180320
  Serious: No
  Sender: FDA-Public Use
  Company Number: US-PFIZER INC-2016464238

PATIENT
  Age: 49 Year
  Sex: Female
  Weight: 124.7 kg

DRUGS (4)
  1. LYRICA [Suspect]
     Active Substance: PREGABALIN
     Indication: PAIN
     Dosage: 225 MG, 2X/DAY (ONE AT NOON AND ONE AT BEDTIME)
  2. LYRICA [Suspect]
     Active Substance: PREGABALIN
     Indication: FIBROMYALGIA
     Dosage: 200 MG, 2X/DAY
     Route: 048
     Dates: start: 2016
  3. LYRICA [Suspect]
     Active Substance: PREGABALIN
     Dosage: 75 MG, UNK
  4. LYRICA [Suspect]
     Active Substance: PREGABALIN
     Dosage: 225 MG, UNK

REACTIONS (9)
  - Condition aggravated [Unknown]
  - Drug ineffective [Not Recovered/Not Resolved]
  - Intentional product misuse [Not Recovered/Not Resolved]
  - Withdrawal syndrome [Unknown]
  - Headache [Not Recovered/Not Resolved]
  - Anxiety [Unknown]
  - Nausea [Not Recovered/Not Resolved]
  - Insomnia [Unknown]
  - Pain [Not Recovered/Not Resolved]

NARRATIVE: CASE EVENT DATE: 2016
